FAERS Safety Report 8166121-5 (Version None)
Quarter: 2012Q1

REPORT INFORMATION
  Report Type: 
  Country: None (occurrence: None)
  Receive Date: 20120227
  Receipt Date: 20110912
  Transmission Date: 20120608
  Serious: No
  Sender: FDA-Public Use
  Company Number: US-MYLANLABS-2011S1006422

PATIENT
  Age: 17 Year
  Sex: Male
  Weight: 78 kg

DRUGS (4)
  1. CLARAVIS [Suspect]
     Indication: ACNE
  2. CLARAVIS [Suspect]
  3. AMNESTEEM [Suspect]
     Indication: ACNE
  4. AMNESTEEM [Suspect]
     Route: 048
     Dates: start: 20100801, end: 20110301

REACTIONS (4)
  - IRRITABILITY [None]
  - MOOD SWINGS [None]
  - ANXIETY [None]
  - MOOD ALTERED [None]
